FAERS Safety Report 10264380 (Version 1)
Quarter: 2014Q2

REPORT INFORMATION
  Report Type: Spontaneous
  Country: US (occurrence: US)
  Receive Date: 20140627
  Receipt Date: 20140627
  Transmission Date: 20141212
  Serious: Yes (Death)
  Sender: FDA-Public Use
  Company Number: US-ROCHE-1424980

PATIENT
  Sex: Female

DRUGS (1)
  1. INTERFERON ALFA-2A [Suspect]
     Indication: HEPATITIS C
     Dosage: TOOK  FOR ONE YEAR, AROUND 11 YEARS AGO.
     Route: 065

REACTIONS (1)
  - Hepatitis C [Fatal]
